FAERS Safety Report 8113516-1 (Version None)
Quarter: 2012Q1

REPORT INFORMATION
  Report Type: 
  Country: None (occurrence: None)
  Receive Date: 20120203
  Receipt Date: 20120124
  Transmission Date: 20120608
  Serious: Yes (Other)
  Sender: FDA-Public Use
  Company Number: CA-JNJFOC-20120200776

PATIENT
  Sex: Female
  Weight: 74 kg

DRUGS (7)
  1. REMICADE [Suspect]
     Indication: CROHN'S DISEASE
     Route: 042
     Dates: start: 20100717, end: 20111214
  2. NEXIUM [Concomitant]
  3. PROCAL [Concomitant]
  4. AMLODIPINE [Concomitant]
  5. ATIVAN [Concomitant]
  6. PAXIL [Concomitant]
  7. VITAMIN B-12 [Concomitant]

REACTIONS (1)
  - NODULE [None]
